FAERS Safety Report 10388590 (Version 2)
Quarter: 2014Q4

REPORT INFORMATION
  Report Type: Spontaneous
  Country: AU (occurrence: AU)
  Receive Date: 20140815
  Receipt Date: 20141028
  Transmission Date: 20150528
  Serious: Yes (Hospitalization, Other)
  Sender: FDA-Public Use
  Company Number: AU-009507513-1408AUS006915

PATIENT
  Age: 81 Year
  Sex: Female
  Weight: 78 kg

DRUGS (10)
  1. SIMVASTATIN. [Concomitant]
     Active Substance: SIMVASTATIN
     Dosage: 80 MG, HS (NOCTE)
     Route: 048
  2. ESTRADIOL. [Suspect]
     Active Substance: ESTRADIOL
     Indication: HORMONE REPLACEMENT THERAPY
     Dosage: 1 MG, QAM (MANE)
     Route: 048
  3. FUROSEMIDE. [Concomitant]
     Active Substance: FUROSEMIDE
     Dosage: 40 MG, QAM (MANE)
     Route: 048
  4. CALCIUM (UNSPECIFIED) [Concomitant]
     Active Substance: CALCIUM
     Dosage: 2.5 GM, 600  MG DAILY
  5. ALENDRONATE SODIUM. [Suspect]
     Active Substance: ALENDRONATE SODIUM
     Dosage: 70 MG, QW
     Route: 048
     Dates: start: 2006
  6. ACTONEL [Suspect]
     Active Substance: RISEDRONATE SODIUM
     Dosage: 35 MG, QW
     Route: 048
     Dates: start: 2008
  7. FLUTICASONE PROPIONATE (+) SALMETEROL XINAFOATE [Suspect]
     Active Substance: FLUTICASONE PROPIONATE\SALMETEROL XINAFOATE
     Dosage: TWO PUFFS TWICE DAILY
  8. ACTONEL COMBI D (RISEDRONATE SODIUM CALCIUM CARBONATE VITAMIN D3) EFFERVESCENT GRANULES, 35MG [Suspect]
     Active Substance: CALCIUM CARBONATE\CHOLECALCIFEROL\RISEDRONATE SODIUM
     Dosage: RISEDRONATE 35 MG WEEKLY, CALCIUM 2.5 G AND VITAMIN D (COLECALCIFEROL) 22 MICROGRAMS EVERY OTHER DAY
     Route: 048
  9. VITAMIN D [Concomitant]
     Active Substance: CHOLECALCIFEROL
     Dosage: 22 MICROGRAM, QOD (EVERY OTHER MANE)
  10. PARACETAMOL [Concomitant]
     Active Substance: ACETAMINOPHEN
     Dosage: UNK, PRN

REACTIONS (12)
  - Arthralgia [Unknown]
  - Fall [None]
  - Red blood cell count decreased [None]
  - Femur fracture [Unknown]
  - Bursitis [None]
  - Atypical femur fracture [Unknown]
  - Blood albumin decreased [None]
  - Pain [Unknown]
  - Weight bearing difficulty [Unknown]
  - Hypophosphataemia [Recovered/Resolved]
  - Stress fracture [None]
  - Blood calcium decreased [None]
